FAERS Safety Report 8200143-0 (Version None)
Quarter: 2012Q1

REPORT INFORMATION
  Report Type: 
  Country: None (occurrence: None)
  Receive Date: 20120312
  Receipt Date: 20120229
  Transmission Date: 20120608
  Serious: Yes (Hospitalization)
  Sender: FDA-Public Use
  Company Number: US-RB-035439-12

PATIENT
  Age: 80 Year
  Sex: Male

DRUGS (6)
  1. GLUCOSAMINE [Concomitant]
     Indication: PRODUCT USED FOR UNKNOWN INDICATION
  2. MUCINEX D [Suspect]
     Indication: RESPIRATORY TRACT CONGESTION
     Route: 048
  3. FLOMAX [Concomitant]
     Indication: BLOOD PRESSURE
  4. ASPIRIN [Concomitant]
     Indication: PRODUCT USED FOR UNKNOWN INDICATION
  5. LOVAZA [Concomitant]
     Indication: PRODUCT USED FOR UNKNOWN INDICATION
  6. LOSARTAN POTASSIUM [Concomitant]
     Indication: BLOOD PRESSURE

REACTIONS (5)
  - DIZZINESS [None]
  - PALPITATIONS [None]
  - LOSS OF CONSCIOUSNESS [None]
  - HEART RATE INCREASED [None]
  - ARRHYTHMIA [None]
